FAERS Safety Report 23983769 (Version 2)
Quarter: 2024Q3

REPORT INFORMATION
  Report Type: Report from Study
  Country: GB (occurrence: GB)
  Receive Date: 20240618
  Receipt Date: 20240701
  Transmission Date: 20241016
  Serious: Yes (Hospitalization)
  Sender: AMGEN
  Company Number: GB-Vifor (International) Inc.-VIT-2024-05083

PATIENT
  Age: 76 Year
  Sex: Male
  Weight: 59.4 kg

DRUGS (11)
  1. AVACOPAN [Suspect]
     Active Substance: AVACOPAN
     Indication: Anti-neutrophil cytoplasmic antibody positive vasculitis
     Dosage: 30 MILLIGRAM, QD
     Route: 048
     Dates: start: 20240227, end: 20240415
  2. AVACOPAN [Suspect]
     Active Substance: AVACOPAN
     Dosage: 30 MILLIGRAM, QD
     Route: 048
     Dates: start: 20240418
  3. CYCLOPHOSPHAMIDE [Concomitant]
     Active Substance: CYCLOPHOSPHAMIDE
     Indication: Anti-neutrophil cytoplasmic antibody positive vasculitis
     Dosage: ONGOING
     Route: 042
  4. COTRIMOXAZOLE [Concomitant]
     Active Substance: SULFAMETHOXAZOLE\TRIMETHOPRIM
     Indication: Prophylaxis
     Dosage: ONGOING
     Route: 048
     Dates: start: 20240224
  5. CALCIUM CARBONATE\CHOLECALCIFEROL [Concomitant]
     Active Substance: CALCIUM CARBONATE\CHOLECALCIFEROL
     Indication: Vitamin D deficiency
     Dosage: 750 MILLIGRAM, QD
     Dates: start: 20240223
  6. AMLODIPINE [Concomitant]
     Active Substance: AMLODIPINE BESYLATE
     Indication: Hypertension
     Dosage: ONGOING
     Dates: start: 20201007
  7. DOXAZOSIN [Concomitant]
     Active Substance: DOXAZOSIN MESYLATE
     Indication: Hypertension
     Dosage: ONGOING
     Route: 048
     Dates: start: 20240222
  8. OMEPRAZOLE [Concomitant]
     Active Substance: OMEPRAZOLE
     Indication: Prophylaxis
     Dosage: 10 MILLIGRAM, QD
     Dates: start: 20161026, end: 20240517
  9. RANITIDINE HYDROCHLORIDE [Concomitant]
     Active Substance: RANITIDINE HYDROCHLORIDE
     Indication: Gastrooesophageal reflux disease
     Dosage: 10 MILLILITER
     Dates: start: 20240227
  10. PREDNISOLONE [Concomitant]
     Active Substance: PREDNISOLONE
     Indication: Anti-neutrophil cytoplasmic antibody positive vasculitis
     Dosage: REDUCE BY 10 MG/WEEK THEN 5 MG FOR 7 DAYS THEN STO
     Dates: start: 20240228, end: 20240402
  11. SODIUM BICARBONATE [Concomitant]
     Active Substance: SODIUM BICARBONATE
     Indication: Chronic kidney disease
     Dosage: ONGOING
     Dates: start: 20240224

REACTIONS (2)
  - Upper respiratory tract infection [Recovered/Resolved]
  - Rash [Recovering/Resolving]

NARRATIVE: CASE EVENT DATE: 20240405
